FAERS Safety Report 18243061 (Version 1)
Quarter: 2020Q3

REPORT INFORMATION
  Report Type: Spontaneous
  Country: US (occurrence: US)
  Receive Date: 20200908
  Receipt Date: 20200908
  Transmission Date: 20201103
  Serious: Yes (Life-Threatening, Hospitalization)
  Sender: FDA-Public Use
  Company Number: None

PATIENT
  Age: 62 Year
  Sex: Female
  Weight: 63 kg

DRUGS (13)
  1. NATURE?THROID [Concomitant]
     Active Substance: THYROID, PORCINE
  2. VITAMIN B12 [Concomitant]
     Active Substance: CYANOCOBALAMIN
  3. METOPROLOL. [Concomitant]
     Active Substance: METOPROLOL
  4. VITAMIN C [Concomitant]
     Active Substance: ASCORBIC ACID
  5. FLONASE [Concomitant]
     Active Substance: FLUTICASONE PROPIONATE
  6. LUTEIN?XEATHIN [Concomitant]
  7. NATURE?THROID [Suspect]
     Active Substance: THYROID, PORCINE
     Indication: THYROID DISORDER
     Dosage: ?          OTHER STRENGTH:1 GRAIN TABLET;?
     Route: 048
  8. VITAMIN D3 [Concomitant]
     Active Substance: CHOLECALCIFEROL
  9. ASPERIN 81MG [Concomitant]
  10. PROGESTERONE. [Concomitant]
     Active Substance: PROGESTERONE
  11. BIEST [Concomitant]
     Active Substance: ESTRADIOL\ESTRIOL
  12. CALCIUM [Concomitant]
     Active Substance: CALCIUM
  13. ELDERBERRY [Concomitant]
     Active Substance: HERBALS

REACTIONS (4)
  - Nausea [None]
  - Vertigo [None]
  - Atrial fibrillation [None]
  - Arrhythmia [None]

NARRATIVE: CASE EVENT DATE: 20200901
